FAERS Safety Report 13575212 (Version 1)
Quarter: 2017Q2

REPORT INFORMATION
  Report Type: Spontaneous
  Country: CA (occurrence: CA)
  Receive Date: 20170524
  Receipt Date: 20170524
  Transmission Date: 20170830
  Serious: Yes (Hospitalization, Other)
  Sender: FDA-Public Use
  Company Number: CA-TEVA-770209ACC

PATIENT
  Age: 14 Year
  Sex: Female
  Weight: 78 kg

DRUGS (24)
  1. DOXORUBICIN INJECTION [Suspect]
     Active Substance: DOXORUBICIN
     Indication: EWING^S SARCOMA
     Dosage: ONCE
     Route: 042
  2. DOXORUBICIN INJECTION [Suspect]
     Active Substance: DOXORUBICIN
     Dosage: ONCE
     Route: 042
  3. CEFTAZIDIME FOR INJECTION, USP [Concomitant]
  4. DIMENHYDRINATE. [Concomitant]
     Active Substance: DIMENHYDRINATE
  5. GABAPENTIN. [Concomitant]
     Active Substance: GABAPENTIN
  6. CYCLOPHOSPHAMIDE. [Concomitant]
     Active Substance: CYCLOPHOSPHAMIDE
  7. ONDANSETRON [Concomitant]
     Active Substance: ONDANSETRON
  8. METOCLOPRAMIDE. [Concomitant]
     Active Substance: METOCLOPRAMIDE
  9. VANCOMYCIN [Concomitant]
     Active Substance: VANCOMYCIN
  10. ACETAMINOPHEN. [Concomitant]
     Active Substance: ACETAMINOPHEN
  11. ENOXAPARIN [Concomitant]
     Active Substance: ENOXAPARIN
  12. AMG479 AMG+INJ [Concomitant]
  13. DIPHENHYDRAMINE. [Concomitant]
     Active Substance: DIPHENHYDRAMINE
  14. MESNA FOR INJECTION [Concomitant]
     Active Substance: MESNA
  15. DOXORUBICIN INJECTION [Suspect]
     Active Substance: DOXORUBICIN
     Dosage: ONCE
     Route: 042
  16. AMITRIPTYLINE [Concomitant]
     Active Substance: AMITRIPTYLINE
  17. LORAZEPAM. [Concomitant]
     Active Substance: LORAZEPAM
  18. MEDROXYPROGESTERONE [Concomitant]
     Active Substance: MEDROXYPROGESTERONE
  19. ZINECARD [Concomitant]
     Active Substance: DEXRAZOXANE HYDROCHLORIDE
  20. DOXORUBICIN INJECTION [Suspect]
     Active Substance: DOXORUBICIN
     Route: 042
  21. DOCUSATE SODIUM. [Concomitant]
     Active Substance: DOCUSATE SODIUM
  22. FILGRASTIM [Concomitant]
     Active Substance: FILGRASTIM
  23. POLYETHYLENE GLYCOL [Concomitant]
     Active Substance: POLYETHYLENE GLYCOLS
  24. VINCRISTINE SULFATE. [Concomitant]
     Active Substance: VINCRISTINE SULFATE

REACTIONS (1)
  - Flagellate dermatitis [Not Recovered/Not Resolved]
